FAERS Safety Report 16350665 (Version 4)
Quarter: 2020Q2

REPORT INFORMATION
  Report Type: Report from Study
  Country: US (occurrence: US)
  Receive Date: 20190524
  Receipt Date: 20200407
  Transmission Date: 20200713
  Serious: Yes (Other)
  Sender: FDA-Public Use
  Company Number: PHEH2019US021758

PATIENT
  Age: 69 Year
  Sex: Female

DRUGS (1)
  1. COSENTYX [Suspect]
     Active Substance: SECUKINUMAB
     Indication: PSORIATIC ARTHROPATHY
     Dosage: UNK
     Route: 065

REACTIONS (13)
  - Hyperhidrosis [Unknown]
  - Nausea [Unknown]
  - Tendonitis [Unknown]
  - Arthritis [Unknown]
  - Fatigue [Unknown]
  - Tendon dislocation [Unknown]
  - Pain in extremity [Unknown]
  - Localised infection [Unknown]
  - Dizziness [Unknown]
  - Injection site warmth [Unknown]
  - Joint dislocation [Unknown]
  - Psoriatic arthropathy [Unknown]
  - Congenital anomaly [Unknown]
